FAERS Safety Report 8022339-3 (Version None)
Quarter: 2011Q4

REPORT INFORMATION
  Report Type: 
  Country: None (occurrence: None)
  Receive Date: 20111123
  Receipt Date: 20110906
  Transmission Date: 20120403
  Serious: No
  Sender: FDA-Public Use
  Company Number: 335168

PATIENT
  Age: 41 Year
  Sex: Female
  Weight: 85.3 kg

DRUGS (1)
  1. VICTOZA [Suspect]
     Indication: TYPE 2 DIABETES MELLITUS
     Dosage: SUBCUTANEOUS
     Route: 058
     Dates: start: 20110828

REACTIONS (3)
  - GLYCOSYLATED HAEMOGLOBIN DECREASED [None]
  - DECREASED APPETITE [None]
  - WEIGHT DECREASED [None]
